FAERS Safety Report 15283439 (Version 1)
Quarter: 2018Q3

REPORT INFORMATION
  Report Type: Spontaneous
  Country: US (occurrence: US)
  Receive Date: 20180816
  Receipt Date: 20180816
  Transmission Date: 20181010
  Serious: No
  Sender: FDA-Public Use
  Company Number: US-PFIZER INC-2018326587

PATIENT
  Age: 43 Year
  Sex: Male

DRUGS (1)
  1. SOMAVERT [Suspect]
     Active Substance: PEGVISOMANT
     Dosage: 20 MG, DAILY
     Dates: start: 2012

REACTIONS (3)
  - Blood growth hormone increased [Unknown]
  - Blood testosterone decreased [Unknown]
  - Insulin-like growth factor increased [Unknown]
